FAERS Safety Report 25858792 (Version 1)
Quarter: 2025Q3

REPORT INFORMATION
  Report Type: Spontaneous
  Country: US (occurrence: None)
  Receive Date: 20250927
  Receipt Date: 20250927
  Transmission Date: 20251020
  Serious: No
  Sender: FDA-CTU
  Company Number: None

PATIENT
  Age: 4 Year
  Sex: Male
  Weight: 17.6 kg

DRUGS (5)
  1. CYCLOPHOSPHAMIDE [Suspect]
     Active Substance: CYCLOPHOSPHAMIDE
     Dates: end: 20250801
  2. ZINECARD [Suspect]
     Active Substance: DEXRAZOXANE HYDROCHLORIDE
     Dates: end: 20250801
  3. DOXORUBICIN HYDROCHLORIDE [Suspect]
     Active Substance: DOXORUBICIN HYDROCHLORIDE
     Dates: end: 20250801
  4. MESNA [Suspect]
     Active Substance: MESNA
     Dates: end: 20250802
  5. VINCRISTINE SULFATE [Suspect]
     Active Substance: VINCRISTINE SULFATE

REACTIONS (4)
  - Acute respiratory failure [None]
  - Alanine aminotransferase increased [None]
  - Aspartate aminotransferase increased [None]
  - Procedural complication [None]

NARRATIVE: CASE EVENT DATE: 20250828
